FAERS Safety Report 8169999-4 (Version None)
Quarter: 2012Q1

REPORT INFORMATION
  Report Type: 
  Country: None (occurrence: None)
  Receive Date: 20120228
  Receipt Date: 20120216
  Transmission Date: 20120608
  Serious: No
  Sender: FDA-Public Use
  Company Number: US-ELI_LILLY_AND_COMPANY-US201111007520

PATIENT
  Sex: Female
  Weight: 79.365 kg

DRUGS (2)
  1. LANTUS [Concomitant]
     Dosage: 10 U, EACH MORNING
  2. HUMALOG [Suspect]
     Indication: DIABETES MELLITUS
     Dosage: UNK, OTHER
     Route: 058

REACTIONS (1)
  - NO ADVERSE EVENT [None]
